FAERS Safety Report 4277174-9 (Version None)
Quarter: 2004Q1

REPORT INFORMATION
  Report Type: 
  Country: None (occurrence: None)
  Receive Date: 20040120
  Receipt Date: 20040109
  Transmission Date: 20041129
  Serious: Yes (Hospitalization)
  Sender: FDA-Public Use
  Company Number: FR-JNJFOC-20040101550

PATIENT
  Age: 71 Year
  Sex: Female

DRUGS (12)
  1. TRAMADOL HCL [Suspect]
     Indication: BACK PAIN
     Dosage: 400 MG, 1 IN 1 DAY, ORAL
     Route: 048
     Dates: start: 20031101, end: 20031117
  2. KETOPROFEN [Concomitant]
  3. ALDACTONE [Concomitant]
  4. COLTRAMYL (THIOCOLCHICOSIDE) [Concomitant]
  5. PREDNISOLONE [Concomitant]
  6. OMEPRAZOLE [Concomitant]
  7. DILTIAZEM HYDROCHLORIDE [Concomitant]
  8. COVERSYL (PERINDOPRIL) [Concomitant]
  9. ASPEGIC 1000 [Concomitant]
  10. PRAVASTATIN SODIUM [Concomitant]
  11. LASIX [Concomitant]
  12. ZYRTEC [Concomitant]

REACTIONS (6)
  - ABDOMINAL PAIN [None]
  - DIARRHOEA [None]
  - INTESTINAL OBSTRUCTION [None]
  - NAUSEA [None]
  - URINARY RETENTION [None]
  - VOMITING [None]
